FAERS Safety Report 17957314 (Version 11)
Quarter: 2022Q1

REPORT INFORMATION
  Report Type: Spontaneous
  Country: US (occurrence: US)
  Receive Date: 20200629
  Receipt Date: 20220304
  Transmission Date: 20220424
  Serious: Yes (Other)
  Sender: FDA-Public Use
  Company Number: US-PFIZER INC-2018426207

PATIENT
  Age: 52 Year
  Sex: Female
  Weight: 120.2 kg

DRUGS (5)
  1. DILANTIN [Suspect]
     Active Substance: PHENYTOIN
     Indication: Epilepsy
     Dosage: 500 MG, ALTERNATE DAY (TWO CAPSULES IN AM AND THREE CAPSULES AT NIGHT) EVERY OTHER DAY
     Route: 048
     Dates: start: 20190318
  2. DILANTIN [Suspect]
     Active Substance: PHENYTOIN
     Dosage: 400 MG, ALTERNATE DAY (200 MG (2 CAPSULES OF 100 MG), TWICE A DAY)
     Route: 048
     Dates: start: 20190318
  3. DILANTIN [Suspect]
     Active Substance: PHENYTOIN
     Dosage: 500 MG, ALTERNATE DAY (TWO CAPSULES IN AM AND THREE CAPSULES AT NIGHT) EVERY OTHER DAY
     Route: 048
     Dates: start: 20201130
  4. DILANTIN [Suspect]
     Active Substance: PHENYTOIN
     Dosage: 400 MG, ALTERNATE DAY (200 MG (2 CAPSULES OF 100 MG), TWICE A DAY)
     Route: 048
     Dates: start: 20201130
  5. PHENOBARBITAL [Concomitant]
     Active Substance: PHENOBARBITAL
     Indication: Epilepsy
     Dosage: 60 MG, 2X/DAY
     Route: 048
     Dates: start: 1970

REACTIONS (12)
  - Hemiplegia [Unknown]
  - Seizure [Unknown]
  - Drug level decreased [Unknown]
  - Drooling [Unknown]
  - Hypohidrosis [Unknown]
  - Weight increased [Unknown]
  - Thyroid disorder [Unknown]
  - Osteoarthritis [Unknown]
  - Body height decreased [Unknown]
  - Intentional product misuse [Unknown]
  - Memory impairment [Unknown]
  - Emotional disorder [Unknown]
